FAERS Safety Report 25192595 (Version 1)
Quarter: 2025Q2

REPORT INFORMATION
  Report Type: Other
  Country: CA (occurrence: CA)
  Receive Date: 20250414
  Receipt Date: 20250414
  Transmission Date: 20250716
  Serious: Yes (Other)
  Sender: PFIZER
  Company Number: CA-PFIZER INC-202500076080

PATIENT
  Age: 71 Year

DRUGS (2)
  1. AZITHROMYCIN [Suspect]
     Active Substance: AZITHROMYCIN
     Indication: Gonorrhoea
     Route: 030
  2. CEFTRIAXONE [Suspect]
     Active Substance: CEFTRIAXONE
     Indication: Gonorrhoea
     Route: 030

REACTIONS (3)
  - Treatment failure [Not Recovered/Not Resolved]
  - Oropharyngeal gonococcal infection [Not Recovered/Not Resolved]
  - Off label use [Unknown]
